FAERS Safety Report 6843115-0 (Version None)
Quarter: 2010Q3

REPORT INFORMATION
  Report Type: 
  Country: None (occurrence: None)
  Receive Date: 20100715
  Receipt Date: 20100706
  Transmission Date: 20110219
  Serious: Yes (Hospitalization)
  Sender: FDA-Public Use
  Company Number: AU-BIOGENIDEC-2010BI019952

PATIENT
  Age: 49 Year
  Sex: Female

DRUGS (3)
  1. AVONEX [Suspect]
     Indication: MULTIPLE SCLEROSIS
     Route: 030
     Dates: start: 20100614
  2. MAXOLON [Concomitant]
  3. STEMETIL [Concomitant]

REACTIONS (1)
  - ADVERSE DRUG REACTION [None]
